FAERS Safety Report 9419497 (Version 1)
Quarter: 2014Q2

REPORT INFORMATION
  Report Type: Spontaneous
  Country: US (occurrence: None)
  Receive Date: 20130724
  Receipt Date: 20130724
  Transmission Date: 20141212
  Serious: Yes (Hospitalization)
  Sender: FDA-Public Use
  Company Number: None

PATIENT
  Age: 63 Year
  Sex: Female
  Weight: 92.53 kg

DRUGS (8)
  1. METHOTREXATE [Suspect]
     Indication: RHEUMATOID ARTHRITIS
     Dosage: 25MG/ML 0.8ML QWK SC
     Route: 058
  2. MELOXICAM [Suspect]
     Indication: RHEUMATOID ARTHRITIS
     Route: 048
  3. HCTZ [Concomitant]
  4. SIMVASTATIN [Concomitant]
  5. PREDNISONE [Concomitant]
  6. DIOVAN [Concomitant]
  7. LEVAQUIN [Concomitant]
  8. FLAGYL [Concomitant]

REACTIONS (10)
  - Pyrexia [None]
  - Abdominal pain [None]
  - Diarrhoea [None]
  - Cough [None]
  - Wheezing [None]
  - Dyspnoea [None]
  - Diverticulum [None]
  - Colitis [None]
  - Bronchitis [None]
  - Dehydration [None]
